FAERS Safety Report 4646093-8 (Version None)
Quarter: 2005Q2

REPORT INFORMATION
  Report Type: 
  Country: None (occurrence: None)
  Receive Date: 20050427
  Receipt Date: 20041004
  Transmission Date: 20051028
  Serious: No
  Sender: FDA-Public Use
  Company Number: US-GLAXOSMITHKLINE-A0528381A

PATIENT
  Age: 39 Year
  Sex: Female

DRUGS (4)
  1. ZOFRAN [Suspect]
     Route: 042
     Dates: start: 20041002, end: 20041002
  2. DILAUDID [Suspect]
  3. PERCOCET [Concomitant]
  4. VISTARIL [Concomitant]

REACTIONS (4)
  - CHILLS [None]
  - DYSKINESIA [None]
  - HYPOAESTHESIA [None]
  - PARAESTHESIA [None]
